FAERS Safety Report 9644305 (Version 1)
Quarter: 2013Q4

REPORT INFORMATION
  Report Type: Spontaneous
  Country: US (occurrence: US)
  Receive Date: 20131025
  Receipt Date: 20131025
  Transmission Date: 20140711
  Serious: Yes (Death)
  Sender: FDA-Public Use
  Company Number: US-ROCHE-1294148

PATIENT
  Sex: Female

DRUGS (5)
  1. XELODA [Suspect]
     Indication: PRODUCT USED FOR UNKNOWN INDICATION
     Dosage: 3 TABS TWICE DAILY FOR 2 WEEKS ON, 1WEEK OFF
     Route: 065
     Dates: start: 20130905
  2. MORPHINE [Concomitant]
     Route: 065
  3. COMPAZINE [Concomitant]
     Route: 065
  4. ZOFRAN [Concomitant]
     Route: 065
  5. TEMAZEPAM [Concomitant]
     Route: 065

REACTIONS (1)
  - Death [Fatal]
